FAERS Safety Report 25364012 (Version 1)
Quarter: 2025Q2

REPORT INFORMATION
  Report Type: Spontaneous
  Country: FR (occurrence: FR)
  Receive Date: 20250527
  Receipt Date: 20250527
  Transmission Date: 20250716
  Serious: Yes (Death)
  Sender: ABBVIE
  Company Number: FR-PFIZER INC-PV202500060878

PATIENT
  Age: 55 Year
  Sex: Female

DRUGS (3)
  1. AVIBACTAM\AZTREONAM [Suspect]
     Active Substance: AVIBACTAM\AZTREONAM
     Indication: Escherichia bacteraemia
     Route: 065
  2. AVIBACTAM\AZTREONAM [Suspect]
     Active Substance: AVIBACTAM\AZTREONAM
     Indication: Escherichia bacteraemia
     Dosage: 6 G, DAILY AS MAINTENANCE DOSE
     Route: 065
  3. VANCOMYCIN [Concomitant]
     Active Substance: VANCOMYCIN
     Indication: Escherichia bacteraemia

REACTIONS (1)
  - Death [Fatal]
